FAERS Safety Report 15295711 (Version 2)
Quarter: 2019Q1

REPORT INFORMATION
  Report Type: Spontaneous
  Country: US (occurrence: US)
  Receive Date: 20180820
  Receipt Date: 20190103
  Transmission Date: 20190417
  Serious: Yes (Other)
  Sender: FDA-Public Use
  Company Number: US-SA-2018SA228030

PATIENT
  Age: 61 Year
  Sex: Female
  Weight: 81 kg

DRUGS (4)
  1. BENICAR [Concomitant]
     Active Substance: OLMESARTAN MEDOXOMIL
     Dosage: UNK
     Route: 065
     Dates: start: 1998
  2. PARAPLATIN [Concomitant]
     Active Substance: CARBOPLATIN
     Route: 065
  3. TAXOTERE [Suspect]
     Active Substance: DOCETAXEL
     Dosage: 75 MG, Q3W
     Route: 042
     Dates: start: 20150420, end: 20150420
  4. TAXOTERE [Suspect]
     Active Substance: DOCETAXEL
     Indication: BREAST CANCER FEMALE
     Dosage: 75 MG, Q3W
     Route: 042
     Dates: start: 20150216, end: 20150216

REACTIONS (2)
  - Alopecia [Not Recovered/Not Resolved]
  - Psychological trauma [Unknown]

NARRATIVE: CASE EVENT DATE: 201502
